FAERS Safety Report 4610030-2 (Version None)
Quarter: 2005Q1

REPORT INFORMATION
  Report Type: 
  Country: None (occurrence: None)
  Receive Date: 20050315
  Receipt Date: 20050301
  Transmission Date: 20050727
  Serious: Yes (Other)
  Sender: FDA-Public Use
  Company Number: GBWYE466601MAR05

PATIENT
  Age: 84 Year
  Sex: Female

DRUGS (7)
  1. EFFEXOR XR [Suspect]
     Dosage: 75MG DAILY
  2. EFFEXOR XR [Suspect]
     Dosage: 150MG DAILY
  3. EFFEXOR XR [Suspect]
     Dosage: 225 MG DAILY;
  4. EFFEXOR XR [Suspect]
     Dosage: 150MG DAILY;
  5. ASPIRIN [Concomitant]
  6. ARICEPT [Concomitant]
  7. HYDROXYCARBAMIDE (HYDROXYCARBAMIDE) [Concomitant]

REACTIONS (3)
  - PARKINSONISM [None]
  - SUICIDAL IDEATION [None]
  - TARDIVE DYSKINESIA [None]
